FAERS Safety Report 23421366 (Version 1)
Quarter: 2024Q1

REPORT INFORMATION
  Report Type: Spontaneous
  Country: US (occurrence: US)
  Receive Date: 20240119
  Receipt Date: 20240119
  Transmission Date: 20240410
  Serious: Yes (Other)
  Sender: FDA-Public Use
  Company Number: US-SUNOVION-2024SUN000036

PATIENT

DRUGS (1)
  1. APTIOM [Suspect]
     Active Substance: ESLICARBAZEPINE ACETATE
     Dosage: 400 MG
     Route: 048
     Dates: start: 202312

REACTIONS (4)
  - Seizure [Unknown]
  - Brain fog [Unknown]
  - Feeling abnormal [Unknown]
  - Headache [Unknown]

NARRATIVE: CASE EVENT DATE: 20240114
